FAERS Safety Report 19506018 (Version 2)
Quarter: 2021Q3

REPORT INFORMATION
  Report Type: Spontaneous
  Country: CN (occurrence: CN)
  Receive Date: 20210708
  Receipt Date: 20210927
  Transmission Date: 20211014
  Serious: Yes (Other)
  Sender: FDA-Public Use
  Company Number: CN-ROCHE-2865520

PATIENT
  Age: 11 Year

DRUGS (1)
  1. XOLAIR [Suspect]
     Active Substance: OMALIZUMAB
     Indication: PRODUCT USED FOR UNKNOWN INDICATION
     Dosage: UNK (FOR MORE THAN 2 YEARS)
     Route: 065

REACTIONS (3)
  - General symptom [Unknown]
  - Abdominal pain [Unknown]
  - Portal hypertension [Unknown]
